FAERS Safety Report 9130928 (Version 1)
Quarter: 2013Q1

REPORT INFORMATION
  Report Type: Spontaneous
  Country: GB (occurrence: GB)
  Receive Date: 20130301
  Receipt Date: 20130301
  Transmission Date: 20140127
  Serious: Yes (Other)
  Sender: FDA-Public Use
  Company Number: GB-PFIZER INC-2013066410

PATIENT
  Sex: Male

DRUGS (4)
  1. VIAGRA [Suspect]
     Dosage: 100 MG, UNK
  2. CLOPIDOGREL [Concomitant]
     Dosage: 75 MG, UNK
  3. BISOPROLOL FUMARATE [Concomitant]
     Dosage: 5 MG, UNK
  4. RAMIPRIL [Concomitant]
     Dosage: 2.5 MG, UNK

REACTIONS (1)
  - Arterial stenosis [Unknown]
